FAERS Safety Report 16101923 (Version 1)
Quarter: 2019Q1

REPORT INFORMATION
  Report Type: Report from Study
  Country: ES (occurrence: ES)
  Receive Date: 20190321
  Receipt Date: 20190321
  Transmission Date: 20190418
  Serious: Yes (Other)
  Sender: FDA-Public Use
  Company Number: ES-MYLANLABS-2019M1025379

PATIENT
  Age: 5 Month
  Sex: Female

DRUGS (3)
  1. FENTANYL. [Interacting]
     Active Substance: FENTANYL
     Dosage: 0,5MCG/KG/H
     Route: 048
     Dates: start: 20161107, end: 20161109
  2. MIDAZOLAM [Interacting]
     Active Substance: MIDAZOLAM HYDROCHLORIDE
     Indication: POSTOPERATIVE ANALGESIA
     Dosage: 0,3 MCG/KG/H
     Route: 042
     Dates: start: 20161104, end: 20161107
  3. FENTANYL. [Suspect]
     Active Substance: FENTANYL
     Indication: POSTOPERATIVE ANALGESIA
     Dosage: 3 MCG/KG/H
     Route: 048
     Dates: start: 20161104, end: 20161107

REACTIONS (2)
  - Withdrawal syndrome [Recovered/Resolved]
  - Drug interaction [Unknown]

NARRATIVE: CASE EVENT DATE: 20161110
